FAERS Safety Report 10254037 (Version 2)
Quarter: 2014Q3

REPORT INFORMATION
  Report Type: Spontaneous
  Country: FR (occurrence: FR)
  Receive Date: 20140623
  Receipt Date: 20140728
  Transmission Date: 20150326
  Serious: Yes (Hospitalization)
  Sender: FDA-Public Use
  Company Number: FR-US-EMD SERONO, INC.-7299017

PATIENT
  Age: 34 Year
  Sex: Female

DRUGS (3)
  1. OVITRELLE [Suspect]
     Active Substance: CHORIOGONADOTROPIN ALFA
     Indication: OVULATION INDUCTION
     Dosage: OVITRELLE 250 MCG/0.5 ML INJECTABLE SOLUTION WITH PRE-FILLED SYRINGE (1 VIAL)
     Dates: start: 20140430, end: 20140430
  2. DECAPEPTYL [Suspect]
     Active Substance: TRIPTORELIN ACETATE
     Indication: OVULATION INDUCTION
     Dosage: POWDER AND SOLVENT FOR SUSPENSION FOR INJECTION
     Route: 030
     Dates: start: 201404, end: 201404
  3. GONAL-F [Suspect]
     Active Substance: FOLLITROPIN
     Indication: OVULATION INDUCTION
     Dosage: GONAL-F 900 IU/1.5 ML (66 MCG/1.5 ML), INJECTABLE SOLUTION WITH PRE-FILLED PEN
     Dates: start: 20140419, end: 20140429

REACTIONS (4)
  - Abdominal pain [Recovered/Resolved]
  - Ovarian hyperstimulation syndrome [Recovered/Resolved]
  - Dyspnoea [Recovered/Resolved]
  - Weight increased [Recovered/Resolved]

NARRATIVE: CASE EVENT DATE: 20140513
